FAERS Safety Report 11752297 (Version 1)
Quarter: 2015Q4

REPORT INFORMATION
  Report Type: Report from Study
  Country: GB (occurrence: GB)
  Receive Date: 20151118
  Receipt Date: 20151118
  Transmission Date: 20160304
  Serious: Yes (Other)
  Sender: FDA-Public Use
  Company Number: GB-ASTRAZENECA-2015SE75891

PATIENT
  Age: 55 Year
  Sex: Female
  Weight: 59.2 kg

DRUGS (3)
  1. AZD6244 [Suspect]
     Active Substance: SELUMETINIB
     Indication: THYMOMA MALIGNANT
     Route: 048
     Dates: start: 20150717
  2. VANDETANIB. [Suspect]
     Active Substance: VANDETANIB
     Indication: THYMOMA MALIGNANT
     Route: 048
     Dates: start: 20150703, end: 20150704
  3. VANDETANIB. [Suspect]
     Active Substance: VANDETANIB
     Indication: THYMOMA MALIGNANT
     Route: 048
     Dates: start: 20150705

REACTIONS (1)
  - Retinal detachment [Recovered/Resolved]

NARRATIVE: CASE EVENT DATE: 20150722
